FAERS Safety Report 16571985 (Version 1)
Quarter: 2019Q3

REPORT INFORMATION
  Report Type: Spontaneous
  Country: US (occurrence: US)
  Receive Date: 20190715
  Receipt Date: 20190715
  Transmission Date: 20191004
  Serious: No
  Sender: FDA-Public Use
  Company Number: US-PFIZER INC-2019295292

PATIENT
  Age: 44 Year
  Sex: Female
  Weight: 132.9 kg

DRUGS (1)
  1. REVATIO [Suspect]
     Active Substance: SILDENAFIL CITRATE
     Indication: PULMONARY HYPERTENSION
     Dosage: 20 MG, 3X/DAY (1 TABLET 3 TIMES DAILY BY MOUTH)
     Route: 048

REACTIONS (2)
  - Dyspnoea [Unknown]
  - Fatigue [Unknown]
